FAERS Safety Report 5692028-9 (Version None)
Quarter: 2008Q2

REPORT INFORMATION
  Report Type: 
  Country: None (occurrence: None)
  Receive Date: 20080402
  Receipt Date: 20080328
  Transmission Date: 20081010
  Serious: Yes (Disabling)
  Sender: FDA-Public Use
  Company Number: GB-MERCK-0803GBR00100

PATIENT
  Age: 79 Year
  Sex: Male

DRUGS (1)
  1. NOROXIN [Suspect]
     Indication: URINARY TRACT INFECTION
     Route: 048
     Dates: start: 20070301

REACTIONS (1)
  - PAIN IN EXTREMITY [None]
